FAERS Safety Report 25139267 (Version 3)
Quarter: 2025Q2

REPORT INFORMATION
  Report Type: Spontaneous
  Country: CA (occurrence: CA)
  Receive Date: 20250331
  Receipt Date: 20250625
  Transmission Date: 20250716
  Serious: Yes (Other)
  Sender: CELLTRION
  Company Number: CA-PFIZER INC-202500064750

PATIENT

DRUGS (4)
  1. INFLECTRA [Suspect]
     Active Substance: INFLIXIMAB-DYYB
     Indication: Rheumatoid arthritis
     Route: 042
     Dates: start: 20250303
  2. HYDROQUININE [Concomitant]
     Dates: start: 2008
  3. METHOTREXATE [Concomitant]
     Active Substance: METHOTREXATE
     Indication: Rheumatoid arthritis
     Dosage: 25 MG, WEEKLY
     Dates: start: 2008
  4. PREDNISONE [Concomitant]
     Active Substance: PREDNISONE
     Dates: start: 2018

REACTIONS (2)
  - Lip and/or oral cavity cancer [Unknown]
  - Off label use [Unknown]

NARRATIVE: CASE EVENT DATE: 20250303
